FAERS Safety Report 5015572-6 (Version None)
Quarter: 2006Q2

REPORT INFORMATION
  Report Type: 
  Country: None (occurrence: None)
  Receive Date: 20060601
  Receipt Date: 20051101
  Transmission Date: 20061013
  Serious: Yes (Hospitalization)
  Sender: FDA-Public Use
  Company Number: DE-ROCHE-423377

PATIENT
  Age: 59 Year
  Sex: Female

DRUGS (15)
  1. MYCOPHENOLATE MOFETIL [Suspect]
     Route: 042
     Dates: start: 20050217, end: 20050221
  2. MYCOPHENOLATE MOFETIL [Suspect]
     Route: 048
     Dates: start: 20050222, end: 20050623
  3. TACROLIMUS [Suspect]
     Dosage: 24 HOUR INFUSION.
     Route: 042
     Dates: start: 20050217, end: 20050218
  4. TACROLIMUS [Suspect]
     Dosage: DOSE ADJUSTED TO REACH PREDEFINED TARGET LEVELS.
     Route: 048
     Dates: start: 20050218, end: 20050624
  5. PREDNISONE [Suspect]
     Route: 065
     Dates: start: 20050218, end: 20050219
  6. PREDNISOLONE [Suspect]
     Dosage: DOSE TAPERED ACCORDING TO LOCAL PROTOCOL.
     Route: 065
     Dates: start: 20050220, end: 20050531
  7. PREDNISOLONE [Suspect]
     Route: 065
     Dates: start: 20050718, end: 20050720
  8. PREDNISOLONE [Suspect]
     Route: 065
     Dates: start: 20050721, end: 20051123
  9. GANCICLOVIR [Concomitant]
     Dosage: STOPPED ON 27 MARCH 2005 AND RESTARTED ON 18 JULY 2005
     Dates: start: 20050218, end: 20050803
  10. INSULINE [Concomitant]
     Indication: DIABETES MELLITUS
     Dates: start: 19980615
  11. FUROSEMIDE [Concomitant]
     Dates: start: 20050222
  12. SPIRONOLACTONE [Concomitant]
     Dates: start: 19950615
  13. PROPRANOLOL [Concomitant]
     Dates: start: 20010615
  14. ACARBOSE [Concomitant]
     Indication: DIABETES MELLITUS
     Dates: start: 19990615
  15. ACTRAPHANE [Concomitant]
     Indication: DIABETES MELLITUS
     Dates: start: 19990615

REACTIONS (1)
  - NERVOUS SYSTEM DISORDER [None]
